FAERS Safety Report 24819012 (Version 1)
Quarter: 2025Q1

REPORT INFORMATION
  Report Type: Spontaneous
  Country: CN (occurrence: CN)
  Receive Date: 20250108
  Receipt Date: 20250108
  Transmission Date: 20250409
  Serious: Yes (Hospitalization)
  Sender: BAYER HEALTHCARE PHARMACEUTICALS INC.
  Company Number: CN-BAYER-2025A002773

PATIENT
  Age: 52 Year
  Sex: Female
  Weight: 66 kg

DRUGS (2)
  1. AVELOX [Suspect]
     Active Substance: MOXIFLOXACIN HYDROCHLORIDE
     Indication: Meningitis tuberculous
     Dosage: 0.4 G, QD
     Route: 041
     Dates: start: 20241224, end: 20241227
  2. LINEZOLID [Concomitant]
     Active Substance: LINEZOLID
     Dosage: 0.6 DF, QD
     Route: 048
     Dates: start: 20241224, end: 20241227

REACTIONS (6)
  - Central nervous system lesion [Recovering/Resolving]
  - Hallucination, auditory [Recovering/Resolving]
  - Hypoaesthesia [Recovering/Resolving]
  - Feeling abnormal [Recovering/Resolving]
  - Product use in unapproved indication [None]
  - Product prescribing issue [None]

NARRATIVE: CASE EVENT DATE: 20241224
